FAERS Safety Report 18564009 (Version 12)
Quarter: 2025Q2

REPORT INFORMATION
  Report Type: Report from Study
  Country: US (occurrence: US)
  Receive Date: 20201201
  Receipt Date: 20250415
  Transmission Date: 20250717
  Serious: Yes (Hospitalization, Other)
  Sender: TAKEDA
  Company Number: US-TAKEDA-US201931096

PATIENT
  Age: 62 Year
  Sex: Female

DRUGS (7)
  1. HUMAN IMMUNOGLOBULIN G [Suspect]
     Active Substance: HUMAN IMMUNOGLOBULIN G
     Indication: Primary immunodeficiency syndrome
     Dosage: 20 GRAM, QD
  2. HUMAN IMMUNOGLOBULIN G [Suspect]
     Active Substance: HUMAN IMMUNOGLOBULIN G
     Indication: Immunodeficiency common variable
     Dosage: 20 GRAM, Q3WEEKS
  3. HUMAN IMMUNOGLOBULIN G [Suspect]
     Active Substance: HUMAN IMMUNOGLOBULIN G
  4. HUMAN IMMUNOGLOBULIN G [Suspect]
     Active Substance: HUMAN IMMUNOGLOBULIN G
  5. GAMMAGARD S/D [Suspect]
     Active Substance: HUMAN IMMUNOGLOBULIN G
     Indication: Primary immunodeficiency syndrome
  6. GAMMAGARD S/D [Suspect]
     Active Substance: HUMAN IMMUNOGLOBULIN G
     Indication: Immunodeficiency common variable
     Dosage: 20 GRAM, QD
  7. IRON [Suspect]
     Active Substance: IRON
     Indication: Product used for unknown indication

REACTIONS (18)
  - COVID-19 [Recovering/Resolving]
  - Autoimmune disorder [Unknown]
  - Seizure [Unknown]
  - Stiff person syndrome [Unknown]
  - Dermatitis contact [Unknown]
  - Multiple allergies [Unknown]
  - Lung disorder [Unknown]
  - Cardiac disorder [Unknown]
  - Blood disorder [Unknown]
  - General physical health deterioration [Unknown]
  - Illness [Unknown]
  - Drug intolerance [Unknown]
  - Haemochromatosis [Unknown]
  - Musculoskeletal stiffness [Unknown]
  - Influenza [Unknown]
  - Chest discomfort [Unknown]
  - Stress [Unknown]
  - Blood pressure decreased [Unknown]

NARRATIVE: CASE EVENT DATE: 20250130
